FAERS Safety Report 9596194 (Version 1)
Quarter: 2013Q4

REPORT INFORMATION
  Report Type: Spontaneous
  Country: IT (occurrence: IT)
  Receive Date: 20131004
  Receipt Date: 20131004
  Transmission Date: 20140711
  Serious: Yes (Hospitalization)
  Sender: FDA-Public Use
  Company Number: IT-BAYER-2013-117761

PATIENT
  Age: 62 Year
  Sex: Female

DRUGS (7)
  1. GLUCOBAY [Suspect]
     Indication: DIABETES MELLITUS
     Dosage: DAILY DOSE 100 MG
     Route: 048
     Dates: start: 20130701, end: 20130921
  2. GLUCOBAY [Suspect]
     Indication: DIABETES MELLITUS
     Dosage: UNK
     Route: 048
  3. TOTALIP [Concomitant]
  4. ENAPREN [Concomitant]
  5. LUCEN [Concomitant]
  6. CARDIOASPIRIN [Concomitant]
  7. SOLOSA [Concomitant]

REACTIONS (2)
  - Urticaria [Recovering/Resolving]
  - Pruritus generalised [Recovering/Resolving]
